FAERS Safety Report 9121204 (Version 2)
Quarter: 2013Q1

REPORT INFORMATION
  Report Type: Report from Study
  Country: US (occurrence: US)
  Receive Date: 20130225
  Receipt Date: 20130315
  Transmission Date: 20140127
  Serious: Yes (Hospitalization)
  Sender: FDA-Public Use
  Company Number: US-PFIZER INC-2013060623

PATIENT
  Age: 63 Year
  Sex: Male
  Weight: 140.62 kg

DRUGS (6)
  1. BLINDED CELECOXIB [Suspect]
     Indication: NON-SMALL CELL LUNG CANCER
     Dosage: CYCLE 1-6: 400MG PO BID DAYS 1 TO 21; CYCLE 7+: 400MG PO BID DAYS 1 TO 21
     Route: 048
     Dates: start: 20130111, end: 20130125
  2. BLINDED NO SUBJECT DRUG [Suspect]
     Indication: NON-SMALL CELL LUNG CANCER
     Dosage: CYCLE 1-6: 400MG PO BID DAYS 1 TO 21; CYCLE 7+: 400MG PO BID DAYS 1 TO 21
     Route: 048
     Dates: start: 20130111, end: 20130125
  3. BLINDED PLACEBO [Suspect]
     Indication: NON-SMALL CELL LUNG CANCER
     Dosage: CYCLE 1-6: 400MG PO BID DAYS 1 TO 21; CYCLE 7+: 400MG PO BID DAYS 1 TO 21
     Route: 048
     Dates: start: 20130111, end: 20130125
  4. CARBOPLATIN [Suspect]
     Indication: NON-SMALL CELL LUNG CANCER
     Dosage: AUC= 5.5 IV DAY 1 (AUC=5.0 WITH PRIOR CHEST RADIOTHERAPY)
     Route: 042
     Dates: start: 20130111, end: 20130111
  5. GEMCITABINE HYDROCHLORIDE [Suspect]
     Indication: NON-SMALL CELL LUNG CANCER
     Dosage: 1000MG/M2 IV DAYS 1 AND 8
     Route: 042
     Dates: start: 20130111, end: 20130118
  6. CIPROFLOXACIN [Concomitant]

REACTIONS (5)
  - Sepsis [Recovered/Resolved]
  - Aspiration [Recovered/Resolved]
  - Febrile neutropenia [Recovered/Resolved]
  - Pseudomonal sepsis [None]
  - Hypotension [None]
